FAERS Safety Report 26191552 (Version 1)
Quarter: 2025Q4

REPORT INFORMATION
  Report Type: Spontaneous
  Country: US (occurrence: US)
  Receive Date: 20251223
  Receipt Date: 20251223
  Transmission Date: 20260118
  Serious: Yes (Other)
  Sender: PHARMASCIENCE
  Company Number: US-Pharmascience Inc.-2191171

PATIENT
  Age: 79 Year
  Sex: Male

DRUGS (3)
  1. DECITABINE [Suspect]
     Active Substance: DECITABINE
     Indication: Anaemia
  2. DECITABINE [Suspect]
     Active Substance: DECITABINE
     Indication: Leukocytosis
  3. DECITABINE [Suspect]
     Active Substance: DECITABINE
     Indication: Thrombocytopenia

REACTIONS (1)
  - Pneumonitis [Recovering/Resolving]
